FAERS Safety Report 13830987 (Version 2)
Quarter: 2017Q3

REPORT INFORMATION
  Report Type: Spontaneous
  Country: PL (occurrence: PL)
  Receive Date: 20170803
  Receipt Date: 20170810
  Transmission Date: 20171127
  Serious: Yes (Death)
  Sender: FDA-Public Use
  Company Number: PL-PFIZER INC-2017328941

PATIENT
  Age: 21 Year
  Sex: Female

DRUGS (18)
  1. EPIRUBICIN [Concomitant]
     Active Substance: EPIRUBICIN
     Indication: ACUTE LYMPHOCYTIC LEUKAEMIA
     Dosage: UNK, CYCLIC
     Dates: start: 201010
  2. DEXAMETHASONE. [Concomitant]
     Active Substance: DEXAMETHASONE
     Indication: ACUTE LYMPHOCYTIC LEUKAEMIA
     Dosage: UNK, CYCLIC (TWO COURSES), (CONSOLIDATION CHEMOTHERAPY)
     Dates: start: 201010
  3. CYTARABINE. [Concomitant]
     Active Substance: CYTARABINE
     Dosage: UNK, (RESCUE CHEMOTHERAPY)
     Dates: start: 201109
  4. VANCOMYCIN [Concomitant]
     Active Substance: VANCOMYCIN
     Indication: ANTIBIOTIC THERAPY
     Dosage: UNK, (AFTER 72 HOURS OF MEROPENEM, VANCOMYCIN WAS ADDED)
     Dates: start: 201109
  5. VORICONAZOLE. [Suspect]
     Active Substance: VORICONAZOLE
     Dosage: 4 MG/KG, 2X/DAY, (ON SUBSEQUENT DAYS)
     Route: 042
     Dates: start: 201109
  6. CYCLOPHOSPHAMIDE. [Concomitant]
     Active Substance: CYCLOPHOSPHAMIDE
     Indication: ACUTE LYMPHOCYTIC LEUKAEMIA
     Dosage: UNK, CYCLIC (TWO COURSES), (CONSOLIDATION CHEMOTHERAPY)
     Dates: start: 201010
  7. POSACONAZOLE [Concomitant]
     Active Substance: POSACONAZOLE
     Indication: ANTIFUNGAL PROPHYLAXIS
     Dosage: UNK
  8. MEROPENEM. [Concomitant]
     Active Substance: MEROPENEM
     Indication: ANTIBIOTIC THERAPY
     Dosage: UNK,
     Dates: start: 201109
  9. PEG/L-ASPARAGINASE [Concomitant]
     Active Substance: PEGASPARGASE
     Indication: ACUTE LYMPHOCYTIC LEUKAEMIA
     Dosage: UNK, CYCLIC
     Dates: start: 201010
  10. VEPESID [Concomitant]
     Active Substance: ETOPOSIDE
     Indication: ACUTE LYMPHOCYTIC LEUKAEMIA
     Dosage: UNK, CYCLIC (TWO COURSES), (CONSOLIDATION CHEMOTHERAPY)
     Dates: start: 201010
  11. VEPESID [Concomitant]
     Active Substance: ETOPOSIDE
     Dosage: UNK, (RESCUE CHEMOTHERAPY)
     Dates: start: 201109
  12. AMPHOTERICIN B. [Concomitant]
     Active Substance: AMPHOTERICIN B
     Indication: ANTIBIOTIC THERAPY
     Dosage: UNK
  13. VINCRISTINE [Concomitant]
     Active Substance: VINCRISTINE
     Indication: ACUTE LYMPHOCYTIC LEUKAEMIA
     Dosage: UNK, CYCLIC
     Dates: start: 201010
  14. IMATINIB [Concomitant]
     Active Substance: IMATINIB
     Indication: ACUTE LYMPHOCYTIC LEUKAEMIA
     Dosage: UNK, CYCLIC
     Dates: start: 201010
  15. VORICONAZOLE. [Suspect]
     Active Substance: VORICONAZOLE
     Indication: SCEDOSPORIUM INFECTION
     Dosage: 6 MG/KG, 2X/DAY, (ON DAY 1)
     Route: 042
     Dates: start: 201109
  16. CYTARABINE. [Concomitant]
     Active Substance: CYTARABINE
     Indication: ACUTE LYMPHOCYTIC LEUKAEMIA
     Dosage: UNK, CYCLIC (TWO COURSES), (CONSOLIDATION CHEMOTHERAPY)
     Dates: start: 201010
  17. EPIRUBICIN [Concomitant]
     Active Substance: EPIRUBICIN
     Dosage: UNK, RESCUE CHEMOTHERAPY
     Dates: start: 201109
  18. METHOTREXATE. [Concomitant]
     Active Substance: METHOTREXATE
     Indication: ACUTE LYMPHOCYTIC LEUKAEMIA
     Dosage: UNK, CYCLIC (TWO COURSES), (CONSOLIDATION CHEMOTHERAPY)
     Dates: start: 201010

REACTIONS (1)
  - Drug ineffective [Fatal]

NARRATIVE: CASE EVENT DATE: 2011
